FAERS Safety Report 4894719-6 (Version None)
Quarter: 2006Q1

REPORT INFORMATION
  Report Type: 
  Country: None (occurrence: None)
  Receive Date: 20060127
  Receipt Date: 20060127
  Transmission Date: 20060701
  Serious: Yes (Life-Threatening, Hospitalization)
  Sender: FDA-Public Use
  Company Number: None

PATIENT
  Age: 58 Year
  Sex: Female
  Weight: 86.1834 kg

DRUGS (2)
  1. CELEBREX [Suspect]
     Indication: ARTHRALGIA
     Dosage: ONE PER DAY PO
     Route: 048
     Dates: start: 20051105, end: 20051218
  2. CELEBREX [Suspect]
     Indication: BURSA DISORDER
     Dosage: ONE PER DAY PO
     Route: 048
     Dates: start: 20051105, end: 20051218

REACTIONS (14)
  - BRONCHITIS [None]
  - COAGULOPATHY [None]
  - DIARRHOEA [None]
  - DRUG INEFFECTIVE [None]
  - DYSPNOEA [None]
  - GASTROOESOPHAGEAL REFLUX DISEASE [None]
  - HEART RATE INCREASED [None]
  - LYMPHADENOPATHY [None]
  - MALAISE [None]
  - MYOCARDIAL INFARCTION [None]
  - NAUSEA [None]
  - NIGHT SWEATS [None]
  - OEDEMA [None]
  - STRESS [None]
